FAERS Safety Report 4668170-8 (Version None)
Quarter: 2005Q2

REPORT INFORMATION
  Report Type: 
  Country: None (occurrence: None)
  Receive Date: 20050523
  Receipt Date: 20050207
  Transmission Date: 20051028
  Serious: Yes (Other)
  Sender: FDA-Public Use
  Company Number: PHEH2005US01750

PATIENT
  Age: 69 Year
  Sex: Male

DRUGS (4)
  1. ZOMETA [Suspect]
     Indication: METASTASES TO BONE
     Dosage: 4MG Q3-4W
     Dates: start: 20030801, end: 20041201
  2. TAXOTERE [Concomitant]
  3. TAXOL [Concomitant]
  4. DECADRON                                /CAN/ [Concomitant]

REACTIONS (5)
  - JAW DISORDER [None]
  - MASTICATION DISORDER [None]
  - OSTEONECROSIS [None]
  - PAIN [None]
  - TOOTH INFECTION [None]
